FAERS Safety Report 17744213 (Version 1)
Quarter: 2020Q3

REPORT INFORMATION
  Report Type: Report from Study
  Country: US (occurrence: US)
  Receive Date: 20200505
  Receipt Date: 20200505
  Transmission Date: 20201104
  Serious: Yes (Hospitalization)
  Sender: FDA-Public Use
  Company Number: US-ENDO PHARMACEUTICALS INC-2020-003572

PATIENT
  Age: 68 Year
  Sex: Male
  Weight: 115.6 kg

DRUGS (5)
  1. TRETINOIN. [Suspect]
     Active Substance: TRETINOIN
     Dosage: UNK MG/M2, UNKNOWN
     Route: 048
     Dates: start: 20180315
  2. INCB?59872. [Suspect]
     Active Substance: INCB-59872
     Dosage: UNK MG, UNKNOWN
     Route: 048
     Dates: start: 20180315
  3. INCB?59872. [Suspect]
     Active Substance: INCB-59872
     Indication: ACUTE MYELOID LEUKAEMIA
     Dosage: 2 MG, DAILY
     Route: 048
     Dates: start: 20180309, end: 20180311
  4. TRETINOIN. [Suspect]
     Active Substance: TRETINOIN
     Indication: ACUTE MYELOID LEUKAEMIA
     Dosage: 45 MG/M2, DAILY
     Route: 048
     Dates: start: 20180309, end: 20180311
  5. CEFDINIR. [Concomitant]
     Active Substance: CEFDINIR
     Indication: PRODUCT USED FOR UNKNOWN INDICATION
     Dosage: UNK UNKNOWN, UNKNOWN
     Route: 065
     Dates: start: 20170920, end: 20180311

REACTIONS (2)
  - Febrile neutropenia [Recovered/Resolved]
  - Rash maculo-papular [Recovered/Resolved]

NARRATIVE: CASE EVENT DATE: 20180311
